FAERS Safety Report 23160081 (Version 8)
Quarter: 2024Q2

REPORT INFORMATION
  Report Type: Report from Study
  Country: GB (occurrence: GB)
  Receive Date: 20231108
  Receipt Date: 20240503
  Transmission Date: 20240715
  Serious: Yes (Other)
  Sender: FDA-Public Use
  Company Number: GB-ARGENX-2023-ARGX-GB002077

PATIENT

DRUGS (2)
  1. VYVGART [Suspect]
     Active Substance: EFGARTIGIMOD ALFA-FCAB
     Indication: Myasthenia gravis
     Route: 065
  2. DEVICE\POLYURETHANE [Concomitant]
     Active Substance: DEVICE\POLYURETHANE
     Indication: Product used for unknown indication
     Dosage: UNK
     Route: 065

REACTIONS (19)
  - Choking [Unknown]
  - Anxiety [Unknown]
  - Myasthenia gravis [Unknown]
  - Blepharospasm [Unknown]
  - Myasthenia gravis [Unknown]
  - Blood pressure increased [Unknown]
  - Tachycardia [Unknown]
  - Dysarthria [Unknown]
  - Dyspnoea [Unknown]
  - Diplopia [Unknown]
  - Eyelid ptosis [Unknown]
  - Myasthenia gravis [Unknown]
  - Animal scratch [Unknown]
  - Fatigue [Unknown]
  - Infection [Unknown]
  - Erythema [Unknown]
  - Swelling [Unknown]
  - Wound [Unknown]
  - Ear infection [Unknown]

NARRATIVE: CASE EVENT DATE: 20230512
